FAERS Safety Report 6156150-5 (Version None)
Quarter: 2009Q2

REPORT INFORMATION
  Report Type: 
  Country: None (occurrence: None)
  Receive Date: 20090413
  Receipt Date: 20090413
  Transmission Date: 20091009
  Serious: Yes (Life-Threatening, Hospitalization)
  Sender: FDA-Public Use
  Company Number: None

PATIENT
  Age: 72 Year
  Sex: Male
  Weight: 109 kg

DRUGS (3)
  1. ARIXTRA [Suspect]
     Indication: DEEP VEIN THROMBOSIS
     Dosage: 2.5 MG DAILY SQ  (DURATION: ABOUT 2 YEARS)
     Route: 058
  2. ARIXTRA [Suspect]
     Indication: PULMONARY EMBOLISM
     Dosage: 2.5 MG DAILY SQ  (DURATION: ABOUT 2 YEARS)
     Route: 058
  3. REVLIMID [Concomitant]

REACTIONS (10)
  - CARDIO-RESPIRATORY ARREST [None]
  - FALL [None]
  - HAEMATOCRIT DECREASED [None]
  - HAEMOGLOBIN DECREASED [None]
  - INFECTION [None]
  - INJURY [None]
  - MUSCLE HAEMORRHAGE [None]
  - PAIN [None]
  - PELVIC HAEMATOMA [None]
  - SUBCUTANEOUS HAEMATOMA [None]
